FAERS Safety Report 7337961-7 (Version None)
Quarter: 2011Q1

REPORT INFORMATION
  Report Type: 
  Country: None (occurrence: None)
  Receive Date: 20110303
  Receipt Date: 20110303
  Transmission Date: 20110831
  Serious: Yes (Life-Threatening, Hospitalization)
  Sender: FDA-Public Use
  Company Number: None

PATIENT
  Age: 60 Year
  Sex: Male

DRUGS (2)
  1. ACETAMINOPHEN AND HYDROCODONE BITARTRATE [Suspect]
     Indication: PAIN
     Dates: start: 20110225, end: 20110227
  2. OXYCODONE [Suspect]
     Indication: PAIN
     Dosage: 10 MG QID PO
     Route: 048
     Dates: start: 20100101

REACTIONS (2)
  - SEDATION [None]
  - OVERDOSE [None]
